FAERS Safety Report 4453689-5 (Version None)
Quarter: 2004Q3

REPORT INFORMATION
  Report Type: 
  Country: None (occurrence: None)
  Receive Date: 20040920
  Receipt Date: 20040910
  Transmission Date: 20050211
  Serious: Yes (Hospitalization)
  Sender: FDA-Public Use
  Company Number: US-AMGEN-US090899

PATIENT
  Sex: Female

DRUGS (5)
  1. ENBREL [Suspect]
     Indication: JUVENILE ARTHRITIS
     Route: 058
     Dates: start: 20021201, end: 20040101
  2. NAPROXEN [Concomitant]
  3. EFFEXOR [Concomitant]
  4. SOMA [Concomitant]
  5. CYPROHEPTADINE HCL [Concomitant]

REACTIONS (5)
  - ALDOLASE INCREASED [None]
  - ANTINUCLEAR ANTIBODY [None]
  - ANTINUCLEAR ANTIBODY POSITIVE [None]
  - MYOSITIS [None]
  - PAIN [None]
